FAERS Safety Report 9518901 (Version 1)
Quarter: 2013Q3

REPORT INFORMATION
  Report Type: Spontaneous
  Country: BE (occurrence: BE)
  Receive Date: 20130912
  Receipt Date: 20130912
  Transmission Date: 20140515
  Serious: Yes (Other)
  Sender: FDA-Public Use
  Company Number: BE-AMGEN-BELSP2013064040

PATIENT
  Age: 76 Year
  Sex: Female

DRUGS (4)
  1. ENBREL [Suspect]
     Indication: RHEUMATOID ARTHRITIS
     Dosage: UNK
     Route: 058
  2. TRANSTEC [Concomitant]
     Dosage: 35 UG, UNK
     Route: 062
  3. PARACETAMOL [Concomitant]
     Dosage: UNK UNK, UNK
  4. ZALDIAR [Concomitant]
     Dosage: UNK

REACTIONS (1)
  - Rheumatoid arthritis [Unknown]
